FAERS Safety Report 6937573-0 (Version None)
Quarter: 2010Q3

REPORT INFORMATION
  Report Type: 
  Country: None (occurrence: None)
  Receive Date: 20100823
  Receipt Date: 20100810
  Transmission Date: 20110219
  Serious: Yes (Disabling, Other)
  Sender: FDA-Public Use
  Company Number: US-ELI_LILLY_AND_COMPANY-US201005006252

PATIENT
  Sex: Female

DRUGS (12)
  1. FORTEO [Suspect]
     Indication: OSTEOPENIA
     Dosage: 20 UG, DAILY (1/D)
     Dates: start: 20100517
  2. FORTEO [Suspect]
     Dosage: 20 UG, DAILY (1/D)
     Dates: start: 20100803, end: 20100807
  3. HIZAAR [Concomitant]
     Dosage: UNK, DAILY (1/D)
  4. TOPROL-XL [Concomitant]
     Dosage: UNK, DAILY (1/D)
  5. VALIUM [Concomitant]
     Dosage: UNK, DAILY (1/D)
  6. NEURONTIN [Concomitant]
     Dosage: UNK, DAILY (1/D)
  7. DARVOCET [Concomitant]
     Dosage: 100 MG, DAILY (1/D)
  8. NEXIUM [Concomitant]
     Dosage: UNK, DAILY (1/D)
  9. COUMADIN [Concomitant]
     Dosage: UNK, DAILY (1/D)
  10. ALLEGRA [Concomitant]
     Dosage: UNK, DAILY (1/D)
  11. NASONEX [Concomitant]
     Dosage: UNK, DAILY (1/D)
  12. COLACE [Concomitant]
     Dosage: UNK, DAILY (1/D)

REACTIONS (8)
  - CONSTIPATION [None]
  - DISCOMFORT [None]
  - FALL [None]
  - FATIGUE [None]
  - GAIT DISTURBANCE [None]
  - MUSCULAR WEAKNESS [None]
  - OEDEMA PERIPHERAL [None]
  - WRIST FRACTURE [None]
